FAERS Safety Report 16407006 (Version 1)
Quarter: 2019Q2

REPORT INFORMATION
  Report Type: Report from Study
  Country: None (occurrence: RO)
  Receive Date: 20190608
  Receipt Date: 20190608
  Transmission Date: 20190711
  Serious: Yes (Hospitalization, Disabling)
  Sender: FDA-Public Use
  Company Number: RO-ABBVIE-19K-135-2810853-00

PATIENT
  Age: 80 Year
  Sex: Female

DRUGS (6)
  1. HUMIRA [Suspect]
     Active Substance: ADALIMUMAB
     Indication: RHEUMATOID ARTHRITIS
     Route: 058
     Dates: start: 20180515
  2. SIOFOR [Concomitant]
     Active Substance: METFORMIN HYDROCHLORIDE
     Indication: DIABETES MELLITUS
     Dosage: UNKNOWN
     Route: 048
  3. ALPHA D3 [Concomitant]
     Active Substance: ALFACALCIDOL
     Indication: DIABETES MELLITUS
     Dosage: UNKNOWN
     Route: 048
  4. ANTINEVRALGIC [Concomitant]
     Active Substance: ASPIRIN\CAFFEINE\PHENACETIN
     Indication: PRODUCT USED FOR UNKNOWN INDICATION
     Route: 048
  5. METHOTREXATE ACCORD [Concomitant]
     Active Substance: METHOTREXATE
     Indication: RHEUMATOID ARTHRITIS
     Route: 065
  6. MYDOCALM [Concomitant]
     Indication: PRODUCT USED FOR UNKNOWN INDICATION
     Route: 048

REACTIONS (8)
  - Magnesium deficiency [Recovered/Resolved]
  - Rheumatoid arthritis [Unknown]
  - Immobile [Not Recovered/Not Resolved]
  - Magnesium deficiency [Recovered/Resolved]
  - Iron deficiency [Recovered/Resolved]
  - Iron deficiency [Recovered/Resolved]
  - Asthenia [Not Recovered/Not Resolved]
  - Vertigo [Not Recovered/Not Resolved]

NARRATIVE: CASE EVENT DATE: 2019
